FAERS Safety Report 5526181-4 (Version None)
Quarter: 2007Q4

REPORT INFORMATION
  Report Type: 
  Country: None (occurrence: None)
  Receive Date: 20071120
  Receipt Date: 20071105
  Transmission Date: 20080405
  Serious: Yes (Hospitalization, Congenital Anomaly)
  Sender: FDA-Public Use
  Company Number: S07-DEN-03230-02

PATIENT
  Sex: Male
  Weight: 3.415 kg

DRUGS (3)
  1. CITALOPRAM HYDROBROMIDE [Suspect]
     Dosage: 20 MG QD TRANSPLACENTAL
     Route: 064
     Dates: end: 20070504
  2. CITALOPRAM HYDROBROMIDE [Suspect]
     Dosage: 30 MG QD TP
     Route: 064
     Dates: start: 20070505, end: 20070523
  3. PENICILLIN G [Concomitant]

REACTIONS (12)
  - AMNIORRHOEA [None]
  - APGAR SCORE LOW [None]
  - APNOEA [None]
  - ASTHENIA [None]
  - BLOOD BILIRUBIN INCREASED [None]
  - C-REACTIVE PROTEIN INCREASED [None]
  - DRUG EXPOSURE DURING PREGNANCY [None]
  - HYPOTONIA NEONATAL [None]
  - INFANTILE APNOEIC ATTACK [None]
  - NEONATAL DISORDER [None]
  - PALLOR [None]
  - PREMATURE BABY [None]
